FAERS Safety Report 5965569-4 (Version None)
Quarter: 2008Q4

REPORT INFORMATION
  Report Type: 
  Country: None (occurrence: None)
  Receive Date: 20081125
  Receipt Date: 20081124
  Transmission Date: 20090506
  Serious: Yes (Death, Hospitalization)
  Sender: FDA-Public Use
  Company Number: BR-ASTRAZENECA-2008UW26263

PATIENT
  Age: 61 Year
  Sex: Female

DRUGS (4)
  1. FASLODEX [Suspect]
     Indication: BREAST CANCER
     Dosage: MONTHLY
     Route: 030
     Dates: start: 20010101, end: 20080701
  2. DECADRON [Concomitant]
  3. HIDANTAL [Concomitant]
     Dosage: TWO TIMES PER DAY
  4. PANTOPRAZOL [Concomitant]

REACTIONS (4)
  - DISEASE PROGRESSION [None]
  - HYPOGLYCAEMIA [None]
  - HYPOTENSION [None]
  - METASTASES TO LIVER [None]
